FAERS Safety Report 18981444 (Version 1)
Quarter: 2021Q1

REPORT INFORMATION
  Report Type: Spontaneous
  Country: SE (occurrence: SE)
  Receive Date: 20210308
  Receipt Date: 20210308
  Transmission Date: 20210420
  Serious: Yes (Hospitalization)
  Sender: FDA-Public Use
  Company Number: SE-BRISTOL-MYERS SQUIBB COMPANY-BMS-2021-019259

PATIENT
  Sex: Female
  Weight: 62 kg

DRUGS (4)
  1. KENACORT?T [Suspect]
     Active Substance: TRIAMCINOLONE ACETONIDE
     Indication: RHEUMATIC DISORDER
     Dosage: UNK
     Route: 065
     Dates: start: 1998, end: 20210128
  2. LEVAXIN [Concomitant]
     Active Substance: LEVOTHYROXINE SODIUM
     Indication: PRODUCT USED FOR UNKNOWN INDICATION
     Route: 065
  3. ENALAPRIL [Concomitant]
     Active Substance: ENALAPRIL
     Indication: PRODUCT USED FOR UNKNOWN INDICATION
     Route: 065
  4. METOPROLOL. [Concomitant]
     Active Substance: METOPROLOL
     Indication: PRODUCT USED FOR UNKNOWN INDICATION
     Route: 065

REACTIONS (7)
  - Muscular weakness [Recovering/Resolving]
  - Pyrexia [Recovering/Resolving]
  - Head discomfort [Recovering/Resolving]
  - Dyspnoea exertional [Recovering/Resolving]
  - Odynophagia [Recovering/Resolving]
  - Dizziness [Recovering/Resolving]
  - Hypertension [Recovering/Resolving]
